FAERS Safety Report 5526137-1 (Version None)
Quarter: 2007Q4

REPORT INFORMATION
  Report Type: 
  Country: None (occurrence: None)
  Receive Date: 20071120
  Receipt Date: 20071108
  Transmission Date: 20080405
  Serious: Yes (Life-Threatening)
  Sender: FDA-Public Use
  Company Number: GXKR2007ES09638

PATIENT
  Age: 58 Year
  Sex: Female

DRUGS (1)
  1. PARACETAMOL (NGX)(PARACETAMOL) UNKNOWN [Suspect]
     Indication: OSTEOARTHRITIS
     Dosage: 650 MG, QW

REACTIONS (2)
  - LIVER INJURY [None]
  - LIVER TRANSPLANT [None]
